FAERS Safety Report 6195245-7 (Version None)
Quarter: 2009Q2

REPORT INFORMATION
  Report Type: 
  Country: None (occurrence: None)
  Receive Date: 20090519
  Receipt Date: 20090512
  Transmission Date: 20091009
  Serious: Yes (Hospitalization, Other)
  Sender: FDA-Public Use
  Company Number: US-ELI_LILLY_AND_COMPANY-US200905002220

PATIENT
  Sex: Female
  Weight: 72.562 kg

DRUGS (6)
  1. BYETTA [Suspect]
     Indication: TYPE 2 DIABETES MELLITUS
     Dosage: 5 UG, 2/D
     Route: 058
     Dates: start: 20080101, end: 20080101
  2. BYETTA [Suspect]
     Dosage: 10 UG, 2/D
     Route: 058
     Dates: start: 20080101
  3. METFORMIN HCL [Concomitant]
     Indication: TYPE 2 DIABETES MELLITUS
     Dosage: 500 MG, DAILY (1/D)
     Route: 048
     Dates: start: 20080101
  4. PROCARDIA XL [Concomitant]
     Indication: BLOOD PRESSURE INCREASED
     Dates: start: 20080101
  5. PRAVASTATIN [Concomitant]
     Indication: BLOOD CHOLESTEROL INCREASED
     Dates: start: 20060101
  6. AGGRENOX [Concomitant]
     Indication: PROPHYLAXIS
     Dates: start: 20080101

REACTIONS (5)
  - BLADDER DISORDER [None]
  - BLADDER PROLAPSE [None]
  - CEREBROVASCULAR ACCIDENT [None]
  - DYSURIA [None]
  - UTERINE PROLAPSE [None]
